FAERS Safety Report 14760272 (Version 6)
Quarter: 2019Q2

REPORT INFORMATION
  Report Type: Report from Study
  Country: BR (occurrence: BR)
  Receive Date: 20180414
  Receipt Date: 20190501
  Transmission Date: 20190711
  Serious: Yes (Hospitalization)
  Sender: FDA-Public Use
  Company Number: BR-ROCHE-2106417

PATIENT
  Age: 82 Year
  Sex: Male
  Weight: 59 kg

DRUGS (2)
  1. XOLAIR [Suspect]
     Active Substance: OMALIZUMAB
     Indication: ASTHMA
     Dosage: 450 MG (3 AMPOULES)
     Route: 058
     Dates: start: 201801, end: 201812
  2. XOLAIR [Suspect]
     Active Substance: OMALIZUMAB
     Dosage: 450 MG (3 AMPOULES)
     Route: 058
     Dates: start: 20170125

REACTIONS (7)
  - Asthmatic crisis [Recovering/Resolving]
  - Influenza [Recovering/Resolving]
  - Dyspnoea [Recovered/Resolved]
  - Asthenia [Recovering/Resolving]
  - Weight decreased [Unknown]
  - Asthma [Unknown]
  - Malaise [Recovering/Resolving]

NARRATIVE: CASE EVENT DATE: 201802
